FAERS Safety Report 17229465 (Version 1)
Quarter: 2020Q1

REPORT INFORMATION
  Report Type: Spontaneous
  Country: US (occurrence: US)
  Receive Date: 20200102
  Receipt Date: 20200102
  Transmission Date: 20200409
  Serious: Yes (Disabling)
  Sender: FDA-Public Use
  Company Number: None

PATIENT
  Age: 47 Year
  Sex: Female
  Weight: 87.75 kg

DRUGS (7)
  1. ZINC. [Concomitant]
     Active Substance: ZINC
  2. CRANBERRY. [Concomitant]
     Active Substance: CRANBERRY
  3. MAGNESIUM MALATE. [Concomitant]
     Active Substance: MAGNESIUM MALATE
  4. CIPROFLOXACIN. [Suspect]
     Active Substance: CIPROFLOXACIN
     Indication: URINARY TRACT INFECTION
     Route: 048
     Dates: start: 20190711, end: 20190711
  5. VITAMIN D3 [Concomitant]
     Active Substance: CHOLECALCIFEROL
  6. PROBIOTICS [Concomitant]
     Active Substance: PROBIOTICS NOS
  7. VITAMIN B12 [Concomitant]
     Active Substance: CYANOCOBALAMIN

REACTIONS (11)
  - Tinnitus [None]
  - Anxiety [None]
  - Fatigue [None]
  - Tremor [None]
  - Pain [None]
  - Muscular weakness [None]
  - Panic attack [None]
  - Hypoaesthesia [None]
  - Decreased activity [None]
  - Urticaria [None]
  - Arthritis [None]

NARRATIVE: CASE EVENT DATE: 20190711
